FAERS Safety Report 9374363 (Version 1)
Quarter: 2013Q2

REPORT INFORMATION
  Report Type: Spontaneous
  Country: FR (occurrence: FR)
  Receive Date: 20130628
  Receipt Date: 20130628
  Transmission Date: 20140414
  Serious: Yes (Hospitalization)
  Sender: FDA-Public Use
  Company Number: PHHY2013FR066132

PATIENT
  Age: 67 Year
  Sex: Female

DRUGS (3)
  1. EXFORGE [Suspect]
     Indication: HYPERTENSION
     Dates: end: 20120726
  2. ESBERIVEN [Suspect]
     Indication: HYPERTENSION
     Dates: start: 201207, end: 20120726
  3. PREVISCAN [Suspect]
     Indication: PROPHYLAXIS
     Dosage: 20 MG, UNK
     Route: 048

REACTIONS (1)
  - Vascular purpura [Recovered/Resolved]
